FAERS Safety Report 9494056 (Version 1)
Quarter: 2013Q3

REPORT INFORMATION
  Report Type: Spontaneous
  Country: FR (occurrence: None)
  Receive Date: 20130827
  Receipt Date: 20130827
  Transmission Date: 20140515
  Serious: Yes (Other)
  Sender: FDA-Public Use
  Company Number: IMP_06804_2013

PATIENT
  Age: 46 Year
  Sex: Female

DRUGS (2)
  1. CARBIDOPA-LEVODOPA-B [Suspect]
     Indication: PARKINSON^S DISEASE
  2. ROPINIROLE [Concomitant]

REACTIONS (10)
  - Dyskinesia [None]
  - Foot fracture [None]
  - Hyperhomocysteinaemia [None]
  - Lumbar vertebral fracture [None]
  - Impaired healing [None]
  - Pseudarthrosis [None]
  - Stress fracture [None]
  - Osteopenia [None]
  - Drug ineffective [None]
  - Condition aggravated [None]
